FAERS Safety Report 14071600 (Version 1)
Quarter: 2017Q4

REPORT INFORMATION
  Report Type: Spontaneous
  Country: US (occurrence: US)
  Receive Date: 20171010
  Receipt Date: 20171010
  Transmission Date: 20180321
  Serious: No
  Sender: FDA-Public Use
  Company Number: US-SA-2017SA147474

PATIENT
  Age: 11 Year
  Sex: Female

DRUGS (3)
  1. SOOLANTRA [Concomitant]
     Active Substance: IVERMECTIN
     Route: 065
  2. DUPIXENT [Suspect]
     Active Substance: DUPILUMAB
     Indication: DERMATITIS
     Route: 058
     Dates: start: 20170608
  3. CEFADROXIL. [Concomitant]
     Active Substance: CEFADROXIL
     Route: 065

REACTIONS (1)
  - Product use issue [Unknown]

NARRATIVE: CASE EVENT DATE: 20170608
